FAERS Safety Report 23353809 (Version 1)
Quarter: 2024Q1

REPORT INFORMATION
  Report Type: Spontaneous
  Country: US (occurrence: US)
  Receive Date: 20240101
  Receipt Date: 20240101
  Transmission Date: 20240410
  Serious: No
  Sender: FDA-Public Use
  Company Number: US-PURDUE PHARMA-USA-2023-0306154

PATIENT
  Sex: Female

DRUGS (10)
  1. OXYCODONE HYDROCHLORIDE [Suspect]
     Active Substance: OXYCODONE HYDROCHLORIDE
     Indication: Pain
     Dosage: 2 TABLET (TOOK 2 PILLS WEDNESDAY)
     Route: 048
     Dates: start: 20231122
  2. OXYCODONE HYDROCHLORIDE [Suspect]
     Active Substance: OXYCODONE HYDROCHLORIDE
     Dosage: 2 TABLET (THURSDAY TOOK 2 PILLS)
     Route: 048
     Dates: start: 20231123
  3. OXYCODONE HYDROCHLORIDE [Suspect]
     Active Substance: OXYCODONE HYDROCHLORIDE
     Dosage: 2 TABLET (NIGHT)
     Route: 048
     Dates: start: 20231124
  4. OXYCODONE HYDROCHLORIDE [Suspect]
     Active Substance: OXYCODONE HYDROCHLORIDE
     Dosage: 5 MILLIGRAM, QD PRN (ONE TABLET AS NEEDED FOR 7-10 DAYS)
     Route: 048
  5. HYDROCODONE BITARTRATE [Suspect]
     Active Substance: HYDROCODONE BITARTRATE
     Indication: Product used for unknown indication
     Dosage: 2 DOSAGE FORM (WEDNESDAY NIGHT TOOK 2 PILLS))
     Route: 065
     Dates: start: 20231122
  6. HYDROCODONE BITARTRATE [Suspect]
     Active Substance: HYDROCODONE BITARTRATE
     Dosage: 2 DOSAGE FORM (THURSDAY THE 23RD TOOK 2 IN THE EVENING))
     Route: 065
     Dates: start: 20231123
  7. HYDROCODONE BITARTRATE [Suspect]
     Active Substance: HYDROCODONE BITARTRATE
     Dosage: 2 DOSAGE FORM (FRIDAY TOOK 2 PILLS)
     Route: 065
     Dates: start: 20231124
  8. VIT D [VITAMIN D NOS] [Concomitant]
     Indication: Product used for unknown indication
     Dosage: 2000 MILLIGRAM, DAILY
     Route: 065
  9. ASPIRIN [Concomitant]
     Active Substance: ASPIRIN
     Indication: Product used for unknown indication
     Dosage: 325 MILLIGRAM, DAILY
     Route: 065
  10. VITAMIN C [Concomitant]
     Active Substance: ASCORBIC ACID
     Indication: Product used for unknown indication
     Dosage: 1000 MILLIGRAM, DAILY
     Route: 065

REACTIONS (1)
  - Drug ineffective [Unknown]
